FAERS Safety Report 9051347 (Version 2)
Quarter: 2013Q1

REPORT INFORMATION
  Report Type: Spontaneous
  Country: US (occurrence: US)
  Receive Date: 20130206
  Receipt Date: 20130213
  Transmission Date: 20140127
  Serious: Yes (Other)
  Sender: FDA-Public Use
  Company Number: US-UCBSA-077557

PATIENT
  Age: 35 Year
  Sex: Female

DRUGS (2)
  1. VIMPAT [Suspect]
     Indication: CONVULSION
     Dosage: 100 MG IN THE MORNING AND 200 MG IN THE EVENING
     Dates: start: 201207
  2. TOPAMAX [Concomitant]
     Indication: CONVULSION

REACTIONS (2)
  - Convulsion [Unknown]
  - Drug dose omission [Unknown]
